FAERS Safety Report 25230347 (Version 1)
Quarter: 2025Q2

REPORT INFORMATION
  Report Type: Spontaneous
  Country: US (occurrence: None)
  Receive Date: 20250422
  Receipt Date: 20250422
  Transmission Date: 20250716
  Serious: Yes (Life-Threatening, Hospitalization)
  Sender: FDA-CTU
  Company Number: None

PATIENT
  Age: 84 Year
  Sex: Male
  Weight: 87.75 kg

DRUGS (7)
  1. ORGOVYX [Suspect]
     Active Substance: RELUGOLIX
     Indication: Prostate cancer
     Dosage: OTHER QUANTITY : 30 TABLET(S);?FREQUENCY : DAILY;?
     Route: 048
     Dates: start: 20250309, end: 20250402
  2. EFFEXOR [Suspect]
     Active Substance: VENLAFAXINE HYDROCHLORIDE
  3. LOSARTAN [Concomitant]
     Active Substance: LOSARTAN
  4. AMLODIPINE [Concomitant]
     Active Substance: AMLODIPINE BESYLATE
  5. Glucosamine/chondroitin [Concomitant]
  6. VITAMINS [Concomitant]
     Active Substance: VITAMINS
  7. SOTALOL [Concomitant]
     Active Substance: SOTALOL

REACTIONS (4)
  - Depression [None]
  - Hot flush [None]
  - Chills [None]
  - Self-injurious ideation [None]

NARRATIVE: CASE EVENT DATE: 20250405
